FAERS Safety Report 9300833 (Version 1)
Quarter: 2013Q2

REPORT INFORMATION
  Report Type: Spontaneous
  Country: IR (occurrence: IR)
  Receive Date: 20130521
  Receipt Date: 20130521
  Transmission Date: 20140414
  Serious: Yes (Other)
  Sender: FDA-Public Use
  Company Number: PHHY2013IR048168

PATIENT
  Age: 15 Month
  Sex: Male

DRUGS (1)
  1. PREDNISONE [Suspect]
     Indication: DERMATITIS ATOPIC

REACTIONS (12)
  - Porphyria non-acute [Unknown]
  - Cholestasis [Unknown]
  - Hepatosplenomegaly [Unknown]
  - Skin lesion [Unknown]
  - Abdominal distension [Unknown]
  - Skin erosion [Unknown]
  - Scab [Unknown]
  - Hypertrichosis [Unknown]
  - Dermatitis bullous [Unknown]
  - Photosensitivity reaction [Unknown]
  - Microcytic anaemia [Unknown]
  - Hepatic enzyme abnormal [Unknown]
